FAERS Safety Report 11836547 (Version 1)
Quarter: 2015Q4

REPORT INFORMATION
  Report Type: Spontaneous
  Country: US (occurrence: None)
  Receive Date: 20151214
  Receipt Date: 20151214
  Transmission Date: 20160305
  Serious: No
  Sender: FDA-Public Use
  Company Number: None

PATIENT
  Age: 60 Year

DRUGS (8)
  1. RAPAFLO [Concomitant]
     Active Substance: SILODOSIN
  2. VIKERA [Concomitant]
  3. PANTOPRAZOLE [Concomitant]
     Active Substance: PANTOPRAZOLE SODIUM
  4. FINASTERIDE. [Concomitant]
     Active Substance: FINASTERIDE
  5. ATENOLOL. [Concomitant]
     Active Substance: ATENOLOL
  6. INVOKANA [Concomitant]
     Active Substance: CANAGLIFLOZIN
  7. RIBAVIRIN 200 MG ZYDUS [Suspect]
     Active Substance: RIBAVIRIN
     Indication: CHRONIC HEPATITIS C
     Dosage: 600 MG QAM, 400 MG QPM
     Route: 048
     Dates: start: 20151014
  8. JANUMET [Concomitant]
     Active Substance: METFORMIN HYDROCHLORIDE\SITAGLIPTIN PHOSPHATE

REACTIONS (1)
  - Back pain [None]

NARRATIVE: CASE EVENT DATE: 201511
